FAERS Safety Report 10462678 (Version 2)
Quarter: 2014Q4

REPORT INFORMATION
  Report Type: Spontaneous
  Country: US (occurrence: US)
  Receive Date: 20140918
  Receipt Date: 20141002
  Transmission Date: 20150528
  Serious: Yes (Other)
  Sender: FDA-Public Use
  Company Number: US-PFIZER INC-2014257046

PATIENT
  Age: 47 Year
  Sex: Female
  Weight: 60.32 kg

DRUGS (2)
  1. LIDOCAINE VISCOUS [Concomitant]
     Active Substance: LIDOCAINE HYDROCHLORIDE
     Dosage: UNK
     Route: 048
     Dates: start: 20140806
  2. TOLTERODINE TARTRATE. [Suspect]
     Active Substance: TOLTERODINE TARTRATE
     Indication: BLADDER DISORDER
     Dosage: UNK

REACTIONS (8)
  - Drug hypersensitivity [Unknown]
  - Urinary tract infection [Unknown]
  - Cystitis [Unknown]
  - Renal disorder [Not Recovered/Not Resolved]
  - Blood urine present [Unknown]
  - Abdominal pain [Unknown]
  - Urinary retention [Unknown]
  - Kidney infection [Unknown]
